FAERS Safety Report 7241682-9 (Version None)
Quarter: 2011Q1

REPORT INFORMATION
  Report Type: 
  Country: None (occurrence: None)
  Receive Date: 20110124
  Receipt Date: 20110113
  Transmission Date: 20110831
  Serious: Yes (Hospitalization, Other)
  Sender: FDA-Public Use
  Company Number: PHHY2011US01209

PATIENT
  Sex: Female

DRUGS (11)
  1. CALCIUM CITRATE [Concomitant]
     Dosage: UNK, BID
  2. BACLOFEN [Concomitant]
     Indication: PARAPARESIS
     Dosage: 20 MG AT THE NOUR OF SLEEP AND 10 MG IN  THE MORNING AND AT 15.00 HOURS
     Dates: start: 20090101
  3. MAGNESIUM [Concomitant]
     Dosage: UNK, QD
  4. FAMPRIDINE [Concomitant]
     Indication: GAIT DISTURBANCE
     Dosage: 10 MG, BID
     Dates: start: 20101001
  5. BIOTIN [Concomitant]
     Dosage: UNK, QD
  6. VITAMIN B COMPLEX CAP [Concomitant]
     Dosage: UNK, QD
  7. LYRICA [Concomitant]
     Indication: PARAESTHESIA
     Dosage: 100 MG, BID
     Dates: start: 20101101
  8. ASPIRIN [Concomitant]
     Dosage: 81 MG, DAILY
  9. GILENYA [Suspect]
     Indication: RELAPSING-REMITTING MULTIPLE SCLEROSIS
     Dosage: 0.5 MG, QD
     Route: 048
     Dates: start: 20110104
  10. LUNESTA [Concomitant]
     Indication: INSOMNIA
     Dosage: 3 MG, QHS
     Dates: start: 20100701
  11. VITAMIN D [Concomitant]
     Dosage: UNK

REACTIONS (7)
  - DIZZINESS [None]
  - BLOOD PRESSURE INCREASED [None]
  - HYPERHIDROSIS [None]
  - ATRIOVENTRICULAR BLOCK COMPLETE [None]
  - HEART RATE DECREASED [None]
  - SYNCOPE [None]
  - ELECTROCARDIOGRAM PR PROLONGATION [None]
